FAERS Safety Report 6003571-7 (Version None)
Quarter: 2008Q4

REPORT INFORMATION
  Report Type: 
  Country: None (occurrence: None)
  Receive Date: 20081212
  Receipt Date: 20081212
  Transmission Date: 20090506
  Serious: Yes (Other)
  Sender: FDA-Public Use
  Company Number: None

PATIENT
  Age: 50 Year
  Sex: Female
  Weight: 76.2043 kg

DRUGS (1)
  1. LEVAQUIN [Suspect]
     Indication: SINUSITIS
     Dosage: 1 A DAY FOR 5 DAYS
     Dates: start: 20081121, end: 20081126

REACTIONS (4)
  - DISCOMFORT [None]
  - FEELING ABNORMAL [None]
  - PAIN [None]
  - PAIN IN EXTREMITY [None]
